FAERS Safety Report 10064131 (Version 3)
Quarter: 2014Q3

REPORT INFORMATION
  Report Type: Report from Study
  Country: US (occurrence: US)
  Receive Date: 20140408
  Receipt Date: 20140710
  Transmission Date: 20150326
  Serious: Yes (Death, Hospitalization, Other)
  Sender: FDA-Public Use
  Company Number: US-ROCHE-1376051

PATIENT
  Age: 62 Year
  Sex: Male
  Weight: 56.3 kg

DRUGS (2)
  1. AVASTIN [Suspect]
     Active Substance: BEVACIZUMAB
     Indication: COLORECTAL CANCER METASTATIC
     Route: 042
     Dates: start: 201403, end: 201403
  2. DILAUDID [Concomitant]
     Active Substance: HYDROMORPHONE HYDROCHLORIDE

REACTIONS (4)
  - Exploratory operation [Recovering/Resolving]
  - Small intestine polyp [Recovering/Resolving]
  - Weight decreased [Recovering/Resolving]
  - Peritonitis [Fatal]

NARRATIVE: CASE EVENT DATE: 201403
